FAERS Safety Report 9065476 (Version 1)
Quarter: 2013Q1

REPORT INFORMATION
  Report Type: Spontaneous
  Country: US (occurrence: US)
  Receive Date: 20130214
  Receipt Date: 20130214
  Transmission Date: 20140127
  Serious: Yes (Other)
  Sender: FDA-Public Use
  Company Number: US-JNJFOC-20130204425

PATIENT
  Age: 37 Year
  Sex: Female

DRUGS (2)
  1. XARELTO [Suspect]
     Indication: DEEP VEIN THROMBOSIS
     Route: 048
  2. CONTRACEPTIVE [Concomitant]

REACTIONS (2)
  - Deep vein thrombosis [Unknown]
  - Vaginal haemorrhage [Unknown]
